FAERS Safety Report 16202556 (Version 2)
Quarter: 2019Q3

REPORT INFORMATION
  Report Type: Spontaneous
  Country: US (occurrence: US)
  Receive Date: 20190416
  Receipt Date: 20190703
  Transmission Date: 20191004
  Serious: No
  Sender: FDA-Public Use
  Company Number: US-SA-2019SA104671

PATIENT
  Age: 45 Year
  Sex: Female
  Weight: 69 kg

DRUGS (4)
  1. SYNALAR [Concomitant]
     Active Substance: FLUOCINOLONE ACETONIDE
     Dosage: 0.025 %, BID
     Route: 061
  2. FML [Concomitant]
     Active Substance: FLUOROMETHOLONE
     Dosage: 0.1 %, BID
     Route: 047
  3. ZYRTEC [Concomitant]
     Active Substance: CETIRIZINE HYDROCHLORIDE
     Dosage: 10 MG, HS
     Route: 048
  4. DUPIXENT [Suspect]
     Active Substance: DUPILUMAB
     Indication: DERMATITIS ATOPIC
     Dosage: 300 MG, QOW
     Route: 058
     Dates: start: 20170504

REACTIONS (2)
  - Blood cholesterol increased [Unknown]
  - Weight increased [Unknown]

NARRATIVE: CASE EVENT DATE: 2018
